FAERS Safety Report 23203518 (Version 2)
Quarter: 2024Q3

REPORT INFORMATION
  Report Type: Spontaneous
  Country: FR (occurrence: FR)
  Receive Date: 20231120
  Receipt Date: 20240704
  Transmission Date: 20241016
  Serious: No
  Sender: AMGEN
  Company Number: FR-Vifor (International) Inc.-VIT-2023-08887

PATIENT
  Age: 66 Year
  Sex: Male

DRUGS (1)
  1. TAVNEOS [Suspect]
     Active Substance: AVACOPAN
     Indication: Product used for unknown indication
     Dosage: UNK
     Route: 065

REACTIONS (3)
  - Insomnia [Unknown]
  - Treatment delayed [Unknown]
  - Product availability issue [Unknown]

NARRATIVE: CASE EVENT DATE: 20231107
